FAERS Safety Report 20136943 (Version 1)
Quarter: 2021Q4

REPORT INFORMATION
  Report Type: Spontaneous
  Country: US (occurrence: None)
  Receive Date: 20211201
  Receipt Date: 20211201
  Transmission Date: 20220303
  Serious: Yes (Other)
  Sender: FDA-Public Use
  Company Number: None

PATIENT
  Age: 9 Year
  Sex: Female
  Weight: 37.2 kg

DRUGS (1)
  1. KYMRIAH [Suspect]
     Active Substance: TISAGENLECLEUCEL
     Indication: Mature B-cell type acute leukaemia
     Dosage: OTHER FREQUENCY : ONCE;?
     Route: 042
     Dates: start: 20210825, end: 20210825

REACTIONS (5)
  - Neurotoxicity [None]
  - Confusional state [None]
  - Vomiting [None]
  - Speech disorder [None]
  - Dysgraphia [None]

NARRATIVE: CASE EVENT DATE: 20210907
